FAERS Safety Report 4992736-9 (Version None)
Quarter: 2006Q1

REPORT INFORMATION
  Report Type: 
  Country: None (occurrence: None)
  Receive Date: 20060316
  Receipt Date: 20051201
  Transmission Date: 20060701
  Serious: Yes (Other)
  Sender: FDA-Public Use
  Company Number: 22835

PATIENT
  Sex: Male
  Weight: 113 kg

DRUGS (1)
  1. PAMIDRONATE DISODIUM [Suspect]
     Indication: HYPERCALCAEMIA
     Dosage: 90MG/IV
     Route: 042
     Dates: start: 20051113

REACTIONS (3)
  - ABDOMINAL PAIN [None]
  - HYPERHIDROSIS [None]
  - HYPERSENSITIVITY [None]
